FAERS Safety Report 10457754 (Version 2)
Quarter: 2014Q3

REPORT INFORMATION
  Report Type: Spontaneous
  Country: US (occurrence: US)
  Receive Date: 20140916
  Receipt Date: 20140916
  Transmission Date: 20150326
  Serious: Yes (Hospitalization)
  Sender: FDA-Public Use
  Company Number: US-GLAXOSMITHKLINE-A0731282A

PATIENT
  Sex: Male
  Weight: 108.2 kg

DRUGS (2)
  1. GLUCOPHAGE [Concomitant]
     Active Substance: METFORMIN HYDROCHLORIDE
     Dates: start: 1998, end: 2003
  2. AVANDIA [Suspect]
     Active Substance: ROSIGLITAZONE MALEATE
     Indication: TYPE 2 DIABETES MELLITUS
     Dosage: 4MG TWICE PER DAY
     Route: 048
     Dates: start: 1999, end: 200610

REACTIONS (4)
  - Coronary artery disease [Unknown]
  - Injury [Unknown]
  - Myocardial infarction [Unknown]
  - Pain [Unknown]
